FAERS Safety Report 5516738-9 (Version None)
Quarter: 2007Q4

REPORT INFORMATION
  Report Type: 
  Country: None (occurrence: None)
  Receive Date: 20071114
  Receipt Date: 20070502
  Transmission Date: 20080405
  Serious: No
  Sender: FDA-Public Use
  Company Number: A0649434A

PATIENT
  Age: 72 Year
  Sex: Female

DRUGS (2)
  1. COMMIT [Suspect]
     Dates: start: 20070501
  2. NICORETTE [Suspect]

REACTIONS (3)
  - FATIGUE [None]
  - FEELING COLD [None]
  - MALAISE [None]
